FAERS Safety Report 4868904-3 (Version None)
Quarter: 2005Q4

REPORT INFORMATION
  Report Type: 
  Country: None (occurrence: None)
  Receive Date: 20051223
  Receipt Date: 20051215
  Transmission Date: 20060501
  Serious: Yes (Other)
  Sender: FDA-Public Use
  Company Number: 2005-12-0479

PATIENT
  Age: 77 Year
  Sex: Female
  Weight: 54.4316 kg

DRUGS (4)
  1. CLARINEX [Suspect]
     Indication: RHINITIS ALLERGIC
     Dosage: 5 MG QD ORAL
     Route: 048
     Dates: start: 20050920, end: 20050925
  2. OTRIVIN [Suspect]
     Indication: RHINITIS ALLERGIC
     Dosage: Q8-12H  NASAL SPRAY
     Route: 045
  3. VITAMIN B-12 [Concomitant]
  4. ELTROXIN TABLETS [Concomitant]

REACTIONS (2)
  - CONFUSIONAL STATE [None]
  - DISORIENTATION [None]
